FAERS Safety Report 5982545-6 (Version None)
Quarter: 2008Q4

REPORT INFORMATION
  Report Type: 
  Country: None (occurrence: None)
  Receive Date: 20081208
  Receipt Date: 20081126
  Transmission Date: 20090506
  Serious: Yes (Hospitalization, Other)
  Sender: FDA-Public Use
  Company Number: PHEH2008US10223

PATIENT
  Sex: Male

DRUGS (12)
  1. PROLEUKIN [Suspect]
     Indication: MALIGNANT MELANOMA
     Dosage: 600,000 IU/KG Q8HRS
     Route: 042
     Dates: start: 20081023, end: 20081031
  2. CISPLATIN [Concomitant]
     Indication: MALIGNANT MELANOMA
  3. VINBLASTINE SULFATE [Concomitant]
  4. DACARBAZINE [Concomitant]
  5. INTERFERON [Concomitant]
  6. ONDASETRON [Concomitant]
  7. LORAZEPAM [Concomitant]
  8. NEULASTA [Concomitant]
  9. COMPAZINE [Concomitant]
  10. TYLENOL (CAPLET) [Concomitant]
  11. NAPROXEN [Concomitant]
  12. BENADRYL ^PARKE DAVIS^                  /ISR/ [Concomitant]

REACTIONS (7)
  - ERYTHEMA [None]
  - INJECTION SITE DISCOLOURATION [None]
  - INJECTION SITE EXTRAVASATION [None]
  - MEAN CELL VOLUME ABNORMAL [None]
  - OEDEMA PERIPHERAL [None]
  - PANCYTOPENIA [None]
  - WHITE BLOOD CELL COUNT DECREASED [None]
